FAERS Safety Report 25886820 (Version 1)
Quarter: 2025Q4

REPORT INFORMATION
  Report Type: Spontaneous
  Country: US (occurrence: None)
  Receive Date: 20251006
  Receipt Date: 20251006
  Transmission Date: 20260117
  Serious: Yes (Hospitalization)
  Sender: FDA-CTU
  Company Number: None

PATIENT
  Age: 15 Year
  Sex: Male

DRUGS (1)
  1. DUPIXENT [Suspect]
     Active Substance: DUPILUMAB
     Indication: Asthma
     Dosage: 300 NMG EVERY 2 WEEKS SUBCUTNEOUS ?
     Route: 058

REACTIONS (2)
  - Pneumonia [None]
  - Pneumonia [None]

NARRATIVE: CASE EVENT DATE: 20250410
